FAERS Safety Report 8881299 (Version 1)
Quarter: 2012Q4

REPORT INFORMATION
  Report Type: 
  Country: DE (occurrence: DE)
  Receive Date: 20121031
  Receipt Date: 20121031
  Transmission Date: 20130627
  Serious: Yes (Hospitalization)
  Sender: FDA-Public Use
  Company Number: DE-GLAXOSMITHKLINE-D0077388A

PATIENT
  Age: 49 Year
  Sex: Female
  Weight: 61.5 kg

DRUGS (21)
  1. BENLYSTA [Suspect]
     Indication: SYSTEMIC LUPUS ERYTHEMATOSUS
     Dosage: 520MG Unknown
     Route: 042
     Dates: start: 20120319, end: 201209
  2. DECORTIN H [Concomitant]
     Dosage: 5MG Per day
     Route: 048
     Dates: start: 20120319
  3. MYFORTIC [Concomitant]
     Dosage: 360MG Twice per day
     Route: 048
  4. DELIX PROTECT [Concomitant]
     Dosage: 5MG Per day
     Route: 048
  5. EBRANTIL [Concomitant]
     Dosage: 210MG per day
     Route: 048
  6. NEBILET [Concomitant]
     Dosage: 2.5MG Per day
     Route: 048
  7. PROCORALAN [Concomitant]
     Dosage: 5MG Per day
     Route: 048
  8. FALITHROM [Concomitant]
     Route: 048
  9. ASS [Concomitant]
     Dosage: 100MG Per day
     Route: 048
  10. CALCITRIOL [Concomitant]
     Dosage: .25UG Twice per day
     Route: 048
  11. VIGANTOLETTEN [Concomitant]
     Dosage: 1000IU Per day
     Route: 048
  12. RENAGEL [Concomitant]
     Dosage: 2400MG Per day
     Route: 048
  13. CALCIUM ACETATE [Concomitant]
     Dosage: 1900MG Twice per day
     Route: 048
  14. SODIUM HYDROGEN CARBONATE [Concomitant]
     Dosage: 1G Twice per day
     Route: 048
  15. CALCIUM POLYSTYRENE SULPHONATE [Concomitant]
     Route: 048
  16. L-THYROXIN [Concomitant]
     Dosage: 150UG Per day
     Route: 048
  17. DREISAVIT [Concomitant]
     Route: 048
  18. OMEPRAZOL [Concomitant]
     Dosage: 40MG Twice per day
     Route: 048
  19. MCP [Concomitant]
     Dosage: 4MGML As required
     Route: 048
  20. ARCOXIA [Concomitant]
     Dosage: 30MG As required
     Route: 048
  21. CEFUROXIM AXETIL [Concomitant]
     Dosage: 250MG Twice per day
     Route: 048
     Dates: start: 20120921

REACTIONS (1)
  - Extremity necrosis [Not Recovered/Not Resolved]
